FAERS Safety Report 5087715-X (Version None)
Quarter: 2006Q3

REPORT INFORMATION
  Report Type: 
  Country: None (occurrence: None)
  Receive Date: 20060824
  Receipt Date: 20060803
  Transmission Date: 20061208
  Serious: Yes (Hospitalization)
  Sender: FDA-Public Use
  Company Number: HK-BRISTOL-MYERS SQUIBB COMPANY-13468368

PATIENT
  Age: 54 Year
  Sex: Male

DRUGS (3)
  1. ERBITUX [Suspect]
     Indication: NASOPHARYNGEAL CANCER
     Dates: end: 20060731
  2. CISPLATIN [Suspect]
     Indication: NASOPHARYNGEAL CANCER
     Dates: end: 20060724
  3. RADIATION THERAPY [Suspect]
     Indication: NASOPHARYNGEAL CANCER

REACTIONS (3)
  - DEHYDRATION [None]
  - ORAL CANDIDIASIS [None]
  - PHARYNGOLARYNGEAL PAIN [None]
